FAERS Safety Report 10026742 (Version 1)
Quarter: 2014Q1

REPORT INFORMATION
  Report Type: Spontaneous
  Country: US (occurrence: US)
  Receive Date: 20140321
  Receipt Date: 20140321
  Transmission Date: 20141002
  Serious: No
  Sender: FDA-Public Use
  Company Number: US-009507513-1403USA010108

PATIENT
  Sex: Female

DRUGS (1)
  1. GONADOTROPIN, CHORIONIC [Suspect]
     Indication: OVULATION INDUCTION
     Dosage: 10,000 IU, UNK

REACTIONS (1)
  - Ovarian hyperstimulation syndrome [Unknown]
